FAERS Safety Report 12313684 (Version 1)
Quarter: 2016Q2

REPORT INFORMATION
  Report Type: Spontaneous
  Country: FR (occurrence: FR)
  Receive Date: 20160428
  Receipt Date: 20160428
  Transmission Date: 20160815
  Serious: Yes (Life-Threatening, Other)
  Sender: FDA-Public Use
  Company Number: FR-ELI_LILLY_AND_COMPANY-FR201604006380

PATIENT
  Age: 56 Year
  Sex: Male

DRUGS (10)
  1. GEMZAR [Suspect]
     Active Substance: GEMCITABINE HYDROCHLORIDE
     Indication: PANCREATIC CARCINOMA
     Dosage: 1000 MG/M2, WEEKLY (1/W)
     Route: 042
     Dates: start: 20151013, end: 20151123
  2. EPOETIN ZETA [Suspect]
     Active Substance: ERYTHROPOIETIN
     Indication: ANAEMIA
     Dosage: UNK, UNKNOWN
     Route: 042
     Dates: start: 20151124
  3. DAFALGAN [Concomitant]
     Active Substance: ACETAMINOPHEN
     Indication: PREMEDICATION
     Dosage: 2 DF, UNKNOWN
     Route: 042
  4. GEMZAR [Suspect]
     Active Substance: GEMCITABINE HYDROCHLORIDE
     Dosage: 850 MG/M2, THREE OUT OF FOUR WEEKS
     Route: 042
     Dates: start: 20151124, end: 20160222
  5. TIMOFEROL [Suspect]
     Active Substance: ASCORBIC ACID\FERROUS SULFATE
     Indication: ANAEMIA
     Dosage: UNK, UNKNOWN
     Route: 048
     Dates: start: 20151201
  6. ERYTHROPOIETIN [Concomitant]
     Active Substance: ERYTHROPOIETIN
     Dosage: UNK
     Dates: start: 20150223
  7. GEMZAR [Suspect]
     Active Substance: GEMCITABINE HYDROCHLORIDE
     Dosage: 800 MG/M2, THREE OUT OF FOUR WEEKS
     Route: 042
     Dates: start: 20160223, end: 20160301
  8. ZOPHREN                            /00955301/ [Concomitant]
     Active Substance: ONDANSETRON
     Indication: PREMEDICATION
     Dosage: 8 MG, UNKNOWN
     Route: 042
  9. OMEPRAZOLE. [Suspect]
     Active Substance: OMEPRAZOLE
     Indication: GASTROOESOPHAGEAL REFLUX DISEASE
     Dosage: UNK, UNKNOWN
     Route: 048
  10. NEULASTA [Concomitant]
     Active Substance: PEGFILGRASTIM
     Dosage: UNK
     Dates: start: 20160223

REACTIONS (11)
  - Anaemia [Unknown]
  - Neutrophil count increased [Unknown]
  - Neutrophil count decreased [Recovered/Resolved]
  - White blood cell count decreased [Recovered/Resolved]
  - Platelet count increased [Recovered/Resolved]
  - White blood cell count increased [Unknown]
  - Gastrooesophageal reflux disease [Unknown]
  - Blood glucose increased [Unknown]
  - Cardiac failure congestive [Recovered/Resolved]
  - Phlebitis [Unknown]
  - Gastritis [Unknown]

NARRATIVE: CASE EVENT DATE: 20160118
